FAERS Safety Report 4625291-3 (Version None)
Quarter: 2005Q1

REPORT INFORMATION
  Report Type: 
  Country: None (occurrence: None)
  Receive Date: 20050107
  Receipt Date: 20041007
  Transmission Date: 20050727
  Serious: No
  Sender: FDA-Public Use
  Company Number: 235080K04USA

PATIENT
  Age: 34 Year
  Sex: Female

DRUGS (2)
  1. REBIF [Suspect]
     Indication: MULTIPLE SCLEROSIS
     Dosage: 22 MCG, 1 IN 1 ONCE
     Dates: start: 20041006, end: 20041007
  2. REBIF [Suspect]
     Indication: MULTIPLE SCLEROSIS
     Dosage: 22 MCG, 1 IN 1 ONCE
     Dates: start: 20020101

REACTIONS (11)
  - ANXIETY [None]
  - CHEST DISCOMFORT [None]
  - CHEST PAIN [None]
  - DIFFICULTY IN WALKING [None]
  - DYSPNOEA [None]
  - FEELING HOT [None]
  - GAIT DISTURBANCE [None]
  - HOT FLUSH [None]
  - HYPERHIDROSIS [None]
  - INJECTION SITE ERYTHEMA [None]
  - PRURITUS [None]
